FAERS Safety Report 12831939 (Version 6)
Quarter: 2017Q1

REPORT INFORMATION
  Report Type: Spontaneous
  Country: US (occurrence: US)
  Receive Date: 20161010
  Receipt Date: 20170303
  Transmission Date: 20170428
  Serious: Yes (Other)
  Sender: FDA-Public Use
  Company Number: US-009507513-1610USA002562

PATIENT
  Age: 76 Year
  Sex: Male
  Weight: 71.66 kg

DRUGS (8)
  1. ZOCOR [Concomitant]
     Active Substance: SIMVASTATIN
     Dosage: 80 MG, QD
     Route: 048
  2. ATENOLOL. [Concomitant]
     Active Substance: ATENOLOL
     Dosage: 25 MG, QD
     Route: 048
  3. BELSOMRA [Suspect]
     Active Substance: SUVOREXANT
     Dosage: 20 MG, QD
     Route: 048
  4. ASPIRIN. [Concomitant]
     Active Substance: ASPIRIN
     Dosage: 81 MG, QD
     Route: 048
  5. PROSCAR [Concomitant]
     Active Substance: FINASTERIDE
     Dosage: 5 MG, QD
     Route: 048
  6. FLOMAX [Concomitant]
     Active Substance: TAMSULOSIN HYDROCHLORIDE
     Dosage: 0.4 MG, QD
     Route: 048
  7. ZYRTEC [Concomitant]
     Active Substance: CETIRIZINE HYDROCHLORIDE
     Dosage: 10 MG, QD
     Route: 048
  8. BELSOMRA [Suspect]
     Active Substance: SUVOREXANT
     Indication: INSOMNIA
     Dosage: 20 MG, ONCE AT BED TIME, DAILY
     Route: 048
     Dates: start: 20160915, end: 20161001

REACTIONS (2)
  - Nightmare [Recovered/Resolved]
  - Parasomnia [Recovered/Resolved]

NARRATIVE: CASE EVENT DATE: 20161001
